FAERS Safety Report 14209779 (Version 1)
Quarter: 2017Q4

REPORT INFORMATION
  Report Type: Spontaneous
  Country: US (occurrence: US)
  Receive Date: 20171121
  Receipt Date: 20171121
  Transmission Date: 20180321
  Serious: No
  Sender: FDA-Public Use
  Company Number: US-PFIZER INC-2017499375

PATIENT
  Age: 83 Year
  Sex: Female
  Weight: 71.67 kg

DRUGS (1)
  1. IBRANCE [Suspect]
     Active Substance: PALBOCICLIB
     Dosage: UNK, CYCLIC (THREE WEEKS ON)

REACTIONS (6)
  - Chills [Unknown]
  - Peripheral swelling [Unknown]
  - Fatigue [Unknown]
  - Tremor [Unknown]
  - Nausea [Unknown]
  - Decreased appetite [Unknown]
